FAERS Safety Report 5697616-1 (Version None)
Quarter: 2008Q2

REPORT INFORMATION
  Report Type: 
  Country: None (occurrence: None)
  Receive Date: 20080408
  Receipt Date: 20080327
  Transmission Date: 20081010
  Serious: Yes (Hospitalization)
  Sender: FDA-Public Use
  Company Number: FR-ASTRAZENECA-2008CG00477

PATIENT
  Age: 67 Year
  Sex: Female

DRUGS (6)
  1. ARIMIDEX [Suspect]
     Route: 048
     Dates: start: 20030101, end: 20080228
  2. PURINETHOL [Suspect]
     Indication: AUTOIMMUNE HEPATITIS
     Dates: start: 20071113, end: 20080228
  3. IMUREL [Concomitant]
     Indication: AUTOIMMUNE HEPATITIS
     Dates: start: 20070901, end: 20071113
  4. IMUREL [Concomitant]
     Dates: start: 20080228, end: 20080301
  5. CORTICOSTEROIDS [Concomitant]
     Indication: AUTOIMMUNE HEPATITIS
     Dates: start: 20060901, end: 20070701
  6. CORTICOSTEROIDS [Concomitant]
     Dates: start: 20070901

REACTIONS (2)
  - HEPATITIS CHOLESTATIC [None]
  - JAUNDICE CHOLESTATIC [None]
